FAERS Safety Report 19254692 (Version 3)
Quarter: 2024Q2

REPORT INFORMATION
  Report Type: Spontaneous
  Country: US (occurrence: US)
  Receive Date: 20210513
  Receipt Date: 20240510
  Transmission Date: 20240715
  Serious: No
  Sender: FDA-Public Use
  Company Number: US-UCBSA-2020047692

PATIENT
  Age: 83 Year
  Sex: Female

DRUGS (3)
  1. CIMZIA [Suspect]
     Active Substance: CERTOLIZUMAB PEGOL
     Indication: Product used for unknown indication
     Dosage: UNK
  2. CIMZIA [Suspect]
     Active Substance: CERTOLIZUMAB PEGOL
     Dosage: 400 MILLIGRAM, OTHER
     Route: 058
     Dates: start: 20201029, end: 20201116
  3. OTEZLA [Suspect]
     Active Substance: APREMILAST
     Indication: Product used for unknown indication
     Dosage: 30 MILLIGRAM, 2X/DAY (BID)
     Route: 048
     Dates: start: 202008, end: 20201020

REACTIONS (5)
  - Psoriasis [Unknown]
  - Arthralgia [Unknown]
  - Alopecia [Unknown]
  - Memory impairment [Unknown]
  - Product dose omission issue [Unknown]

NARRATIVE: CASE EVENT DATE: 20201013
